FAERS Safety Report 8853218 (Version 2)
Quarter: 2012Q4

REPORT INFORMATION
  Report Type: 
  Country: US (occurrence: US)
  Receive Date: 20121022
  Receipt Date: 20121025
  Transmission Date: 20130627
  Serious: Yes (Other)
  Sender: FDA-Public Use
  Company Number: PHHY2012US092885

PATIENT
  Age: 70 Year
  Sex: Female

DRUGS (10)
  1. BUFFERIN EXTRA STRENGTH [Suspect]
     Indication: MUSCLE STRAIN
     Dosage: 2 to 3 tablets as needed
     Route: 048
  2. BUFFERIN EXTRA STRENGTH [Suspect]
     Indication: HEADACHE
  3. BUFFERIN EXTRA STRENGTH [Suspect]
     Indication: ARTHRITIS
  4. BUFFERIN EXTRA STRENGTH [Suspect]
     Indication: BACK PAIN
  5. BUFFERIN EXTRA STRENGTH [Suspect]
     Indication: MIGRAINE
  6. BUFFERIN REGULAR STRENGTH [Suspect]
     Indication: ARTHRITIS
     Dosage: 2 to 3 DF as needed daily
     Route: 048
  7. BUFFERIN REGULAR STRENGTH [Suspect]
     Indication: BACK PAIN
  8. BUFFERIN REGULAR STRENGTH [Suspect]
     Indication: HEADACHE
  9. BUFFERIN REGULAR STRENGTH [Suspect]
     Indication: MUSCLE STRAIN
  10. BUFFERIN REGULAR STRENGTH [Suspect]
     Indication: MIGRAINE

REACTIONS (9)
  - Breast cancer [Not Recovered/Not Resolved]
  - Type 2 diabetes mellitus [Not Recovered/Not Resolved]
  - Lung disorder [Not Recovered/Not Resolved]
  - Bronchitis chronic [Not Recovered/Not Resolved]
  - Tooth abscess [Recovered/Resolved]
  - Fall [Unknown]
  - Arthralgia [Unknown]
  - Incorrect drug administration duration [Unknown]
  - Wrong technique in drug usage process [Unknown]
